FAERS Safety Report 8228886-3 (Version None)
Quarter: 2012Q1

REPORT INFORMATION
  Report Type: 
  Country: None (occurrence: None)
  Receive Date: 20120322
  Receipt Date: 20120313
  Transmission Date: 20120608
  Serious: Yes (Other)
  Sender: FDA-Public Use
  Company Number: BR-SANOFI-AVENTIS-2012SA017172

PATIENT
  Age: 68 Year
  Sex: Female
  Weight: 105 kg

DRUGS (14)
  1. GABAPENTIN [Concomitant]
     Dosage: SINCE 3 MONTHS
  2. LEVOTHYROXINE SODIUM [Concomitant]
     Dosage: STRENGTH: 100 MCG
  3. THIOCTACID [Concomitant]
     Indication: DIABETIC NEUROPATHY
     Dosage: STRENGTH: 600 MG
  4. LANTUS [Suspect]
     Dosage: DOSE : 18 IU IN THE MORNING AND 14 IU AT NIGHT
     Route: 065
     Dates: end: 20120301
  5. LANTUS [Suspect]
     Dosage: DOSE : 18 IU IN THE MORNING AND 14 IU AT NIGHT
     Route: 065
     Dates: start: 20120301
  6. DIOVAN HCT [Concomitant]
     Dosage: STRENGTH: 320 MG; SINCE 1 YEAR
  7. METFORMIN HCL [Concomitant]
     Dosage: STRENGTH: 850 MG; SINCE 32 YEARS
  8. ALISKIREN [Concomitant]
     Dosage: STRENGTH: 300 MG; SINCE 1 YEAR
  9. LERCANIDIPINE [Concomitant]
     Dosage: STRENGTH: 10 MG
  10. CLIKSTAR [Concomitant]
     Indication: DEVICE THERAPY
     Dates: start: 20120101
  11. BENERVA [Concomitant]
     Dosage: SINCE 10 YEARS
  12. ALDACTONE [Concomitant]
     Dosage: STRENGTH: 25 MG
  13. CILOSTAZOL [Concomitant]
     Dosage: STRENGTH: 100 MG; SINCE 1 YEAR
  14. LEXAPRO [Concomitant]
     Dosage: STRENGTH: 10 MG; SINCE 5 YEARS

REACTIONS (11)
  - DIZZINESS [None]
  - INJECTION SITE PAIN [None]
  - JOINT DISLOCATION [None]
  - SCIATIC NERVE INJURY [None]
  - HYPERGLYCAEMIA [None]
  - MOBILITY DECREASED [None]
  - HYPOGLYCAEMIA [None]
  - BACK PAIN [None]
  - PHARYNGEAL INFLAMMATION [None]
  - DRUG ADMINISTRATION ERROR [None]
  - LARYNGEAL CANCER [None]
